FAERS Safety Report 8505861-2 (Version None)
Quarter: 2012Q3

REPORT INFORMATION
  Report Type: 
  Country: None (occurrence: None)
  Receive Date: 20120702
  Receipt Date: 20120619
  Transmission Date: 20120928
  Serious: Yes (Other)
  Sender: FDA-Public Use
  Company Number: DSA_58142_2012

PATIENT

DRUGS (4)
  1. BEVACIZUMAB [Suspect]
     Indication: COLORECTAL CANCER
     Dosage: 5 MG/KG, INTRAVENOUS
     Route: 042
  2. FLUOROURACIL [Suspect]
     Indication: COLORECTAL CANCER
     Dosage: 450 MG/M2, 1X/WEEK, INTRAVENOUS  BOLUS
     Route: 040
  3. GEMCITABINE HYDROCHLORIDE [Suspect]
     Indication: COLORECTAL CANCER
     Dosage: 5 MG/KG, 1X/WEEK, INTRAVENOUS
     Route: 042
  4. LEUCOVORIN CALCIUM [Suspect]
     Indication: COLORECTAL CANCER
     Dosage: 100 MG/M2, 1X/WEEK, INTRAVENOUS
     Route: 042

REACTIONS (1)
  - LEUKOPENIA [None]
